FAERS Safety Report 4293968-8 (Version None)
Quarter: 2004Q1

REPORT INFORMATION
  Report Type: 
  Country: None (occurrence: None)
  Receive Date: 20040210
  Receipt Date: 20040127
  Transmission Date: 20041129
  Serious: Yes (Death, Life-Threatening, Hospitalization)
  Sender: FDA-Public Use
  Company Number: 2004-DE-00412DE

PATIENT
  Age: 65 Year
  Sex: Male

DRUGS (35)
  1. ATROVENT [Suspect]
     Indication: CHRONIC OBSTRUCTIVE AIRWAYS DISEASE
     Route: 055
     Dates: start: 20030720
  2. SAROTEN (TA) [Suspect]
     Indication: DEPRESSION
     Dosage: 45 MG (NR, 10-10-25 MG)
     Route: 048
     Dates: start: 20010507, end: 20010208
  3. DIAZEPAM (DIAZEPAM) (LOI) [Suspect]
     Indication: AGITATION
     Dosage: 5 MG
     Route: 042
     Dates: start: 20010720, end: 20010720
  4. CIPROBAY (CIPROFLOXACIN HYDROCHLORIDE) (TA) [Suspect]
     Indication: CHRONIC OBSTRUCTIVE AIRWAYS DISEASE
     Dosage: 2 ANZ
     Route: 048
     Dates: start: 20010720, end: 20010724
  5. LASIX [Suspect]
     Indication: RENAL FAILURE
     Dosage: 1 ANZ
     Route: 042
     Dates: start: 20010720, end: 20010720
  6. LASIX [Suspect]
     Indication: RENAL FAILURE
     Dosage: 1 ANZ
     Route: 042
     Dates: start: 20010725, end: 20010725
  7. ALT-INSULIN (ALT-INSULIN) [Suspect]
     Indication: DIABETES MELLITUS
     Dosage: ON DEMAND
     Route: 058
     Dates: start: 20010720
  8. ACC 600 (TA) [Suspect]
     Dosage: 600 MG (600 MG, 1 IN 1 D)
     Route: 048
     Dates: start: 20010720
  9. THEOPHYLLINE [Suspect]
     Indication: CHRONIC OBSTRUCTIVE AIRWAYS DISEASE
     Dosage: 350 MG (350 MG)
     Route: 048
     Dates: start: 20030720
  10. BRONCHOSPASMIN (REPROTEROL HYDROCHLORIDE) (LOI) [Suspect]
     Indication: CHRONIC OBSTRUCTIVE AIRWAYS DISEASE
     Dosage: 12 ANZ
     Route: 042
     Dates: start: 20010720
  11. FORADIL [Suspect]
     Indication: CHRONIC OBSTRUCTIVE AIRWAYS DISEASE
     Dosage: SEVERAL TIMES PER DAY
     Route: 055
     Dates: start: 20010720
  12. SOLU-DECORTIN H (LOI) [Suspect]
     Indication: CHRONIC OBSTRUCTIVE AIRWAYS DISEASE
     Dosage: 100-0-50 MG (NR, 100-0-50 MG)
     Route: 042
     Dates: start: 20010720
  13. PANTOZOL (TA) [Suspect]
     Indication: CHRONIC OBSTRUCTIVE AIRWAYS DISEASE
     Dosage: 40 MG (40 MG, 1 IN 1 D)
     Route: 048
     Dates: start: 20010720
  14. LEFAX (DIMETICONE, ACTIVATED) (TA) [Suspect]
     Indication: FLATULENCE
     Route: 048
     Dates: start: 20010721, end: 20010721
  15. ZYLORIC (TA) [Suspect]
     Indication: HYPERURICAEMIA
     Dosage: 300 MG (300 MG, 1 IN 1 D)
     Route: 048
     Dates: start: 20010721
  16. NITRO (GLYCERYL TRINITRATE) (LOI) [Suspect]
     Indication: CARDIAC ASTHMA
     Dosage: 50 MG/50 ML
     Route: 042
     Dates: start: 20010723, end: 20010724
  17. HEPARIN [Suspect]
     Indication: THROMBOSIS PROPHYLAXIS
     Dosage: 2500 U
     Route: 042
     Dates: start: 20010723
  18. NORVASC [Suspect]
     Indication: HYPERTENSION
     Dosage: 10 MG
     Route: 048
     Dates: start: 20010723
  19. VOLMAC (SALBUTAMOL SULFATE) (TA) [Suspect]
     Indication: CHRONIC OBSTRUCTIVE AIRWAYS DISEASE
     Dosage: 8 MG
     Route: 048
     Dates: start: 20010723
  20. UNAT (TORASEMIDE) (TA) [Suspect]
     Indication: OEDEMA DUE TO CARDIAC DISEASE
     Dosage: 10 MG (10 MG, 1 IN 1 D)
     Route: 048
     Dates: start: 20010723
  21. BIFITERAL (LACTULOSE) (SIR) [Suspect]
     Indication: CONSTIPATION
     Dosage: 20 ML
     Route: 048
     Dates: start: 20010724, end: 20010724
  22. AQUAPHOR (TA) [Suspect]
     Indication: OEDEMA DUE TO CARDIAC DISEASE
     Dosage: 1 ANZ (NR, 1 IN 1 D)
     Route: 048
     Dates: start: 20010724
  23. KALIUMCHLORID (LOI) [Suspect]
     Indication: BLOOD POTASSIUM
     Dosage: 1 ANZ
     Route: 042
     Dates: start: 20010725, end: 20010725
  24. ASS (TA) [Suspect]
     Indication: THROMBOSIS PROPHYLAXIS
     Dosage: 1 ANZ (NR, 1 IN 1 D)
     Route: 048
     Dates: start: 20010725
  25. SORTIS 10 (TA) [Suspect]
     Indication: HYPERLIPIDAEMIA
     Dosage: 10 MG (10 MG, 1 IN 1 D)
     Route: 048
     Dates: start: 20010725
  26. BENAZEPRIL HCL [Suspect]
     Indication: CARDIAC FAILURE
     Dosage: 5 MG (5 MG, 1 IN 1 D)
     Route: 048
     Dates: start: 20010726
  27. BISACODYL (SU) [Suspect]
     Indication: CONSTIPATION
     Dosage: 1 ANZ (NR, 1 IN 1 ONCE)
     Route: 051
     Dates: start: 20010727, end: 20010727
  28. MUCRET (ACETYLCYSTEINE) (TA) [Concomitant]
  29. UNIPHYLLIN (TA) [Concomitant]
  30. BAMBEC (BAMBUTEROL) (TA) [Concomitant]
  31. SEREVENT [Concomitant]
  32. JUNIK (BECLOMETASONE DIPROPIONATE) [Concomitant]
  33. DECORTIN (PREDNISONE) (TA) [Concomitant]
  34. ISOPTIN (VERAPAMIL HYDROCHLORIDE) (TA) [Concomitant]
  35. VIGANTOLETTEN (COLECALCIFEROL) (TA) [Concomitant]

REACTIONS (18)
  - AGITATION [None]
  - CARDIAC ASTHMA [None]
  - CARDIAC FAILURE [None]
  - CONSTIPATION [None]
  - DEPRESSION [None]
  - DIABETES MELLITUS [None]
  - FLATULENCE [None]
  - HYPERLIPIDAEMIA [None]
  - HYPERTENSION [None]
  - HYPERURICAEMIA [None]
  - HYPOKALAEMIA [None]
  - OEDEMA DUE TO CARDIAC DISEASE [None]
  - PNEUMONIA [None]
  - RENAL FAILURE [None]
  - SEPTIC SHOCK [None]
  - SLEEP APNOEA SYNDROME [None]
  - TACHYCARDIA [None]
  - TOXIC EPIDERMAL NECROLYSIS [None]
